FAERS Safety Report 4568322-1 (Version None)
Quarter: 2005Q1

REPORT INFORMATION
  Report Type: 
  Country: None (occurrence: None)
  Receive Date: 20050131
  Receipt Date: 20050117
  Transmission Date: 20050727
  Serious: Yes (Hospitalization)
  Sender: FDA-Public Use
  Company Number: 2005013718

PATIENT
  Age: 76 Year
  Sex: Female

DRUGS (4)
  1. TRIFLUCAN (FLUCONAZOLE) [Suspect]
     Indication: FUNGAL INFECTION
     Dosage: (1 DAY), ORAL
     Route: 048
  2. DIPYRIDAMOLE [Concomitant]
  3. PIRIBEDIL (PERIBDEIL) [Concomitant]
  4. ACETYLSALICYLIC ACID SRT [Concomitant]

REACTIONS (5)
  - CHEST PAIN [None]
  - DIZZINESS [None]
  - HEADACHE [None]
  - MALAISE [None]
  - NAUSEA [None]
